FAERS Safety Report 5338612-3 (Version None)
Quarter: 2007Q2

REPORT INFORMATION
  Report Type: 
  Country: None (occurrence: None)
  Receive Date: 20070322
  Receipt Date: 20060821
  Transmission Date: 20071010
  Serious: Yes (Other)
  Sender: FDA-Public Use
  Company Number: 200612892BCC

PATIENT
  Age: 66 Year
  Sex: Male
  Weight: 101.6057 kg

DRUGS (7)
  1. ALEVE [Suspect]
     Indication: ARTHRITIS
     Dosage: 220 MG, QD, ORAL
     Route: 048
     Dates: start: 20060602, end: 20060709
  2. LIPITOR [Concomitant]
  3. PLAVIX [Concomitant]
  4. WELLBUTRIN XL [Concomitant]
  5. AMBIEN [Concomitant]
  6. METOPROLOL SUCCINATE [Concomitant]
  7. CAPTOPRIL [Concomitant]

REACTIONS (2)
  - BLOOD PRESSURE INCREASED [None]
  - EYE PAIN [None]
